FAERS Safety Report 9310197 (Version 1)
Quarter: 2013Q2

REPORT INFORMATION
  Report Type: Spontaneous
  Country: US (occurrence: US)
  Receive Date: 20130527
  Receipt Date: 20130527
  Transmission Date: 20140414
  Serious: No
  Sender: FDA-Public Use
  Company Number: US-009507513-1305USA014075

PATIENT
  Sex: 0

DRUGS (1)
  1. TEMODAR [Suspect]
     Indication: MALIGNANT MELANOMA
     Route: 048

REACTIONS (2)
  - Drug intolerance [Recovered/Resolved]
  - Vomiting [Recovered/Resolved]
